FAERS Safety Report 10157841 (Version 2)
Quarter: 2017Q4

REPORT INFORMATION
  Report Type: Report from Study
  Country: None (occurrence: GB)
  Receive Date: 20140507
  Receipt Date: 20171116
  Transmission Date: 20180320
  Serious: Yes (Death, Other)
  Sender: FDA-Public Use
  Company Number: GB-ABBVIE-14P-167-1234424-00

PATIENT
  Sex: Male
  Weight: 94.4 kg

DRUGS (1)
  1. HUMIRA [Suspect]
     Active Substance: ADALIMUMAB
     Indication: PRODUCT USED FOR UNKNOWN INDICATION
     Route: 058
     Dates: start: 20120420, end: 20120813

REACTIONS (8)
  - Cardiac failure congestive [Fatal]
  - Myocardial infarction [Unknown]
  - Chronic obstructive pulmonary disease [Fatal]
  - Hypoventilation [Fatal]
  - Type 2 diabetes mellitus [Fatal]
  - Hypertension [Fatal]
  - Chronic kidney disease [Fatal]
  - Obesity [Fatal]
